FAERS Safety Report 5394400-3 (Version None)
Quarter: 2007Q3

REPORT INFORMATION
  Report Type: 
  Country: None (occurrence: None)
  Receive Date: 20070723
  Receipt Date: 20070710
  Transmission Date: 20080115
  Serious: Yes (Other)
  Sender: FDA-Public Use
  Company Number: JP-ASTRAZENECA-2007AP03642

PATIENT
  Age: 93 Year
  Sex: Female

DRUGS (1)
  1. MEROPENEM [Suspect]
     Indication: PNEUMONIA
     Route: 041

REACTIONS (1)
  - HEPATIC FUNCTION ABNORMAL [None]
